FAERS Safety Report 7136985-2 (Version None)
Quarter: 2010Q4

REPORT INFORMATION
  Report Type: 
  Country: None (occurrence: None)
  Receive Date: 20101206
  Receipt Date: 20030902
  Transmission Date: 20110411
  Serious: Yes (Death)
  Sender: FDA-Public Use
  Company Number: US-ACTELION-A-US2003-02371

PATIENT

DRUGS (12)
  1. TRACLEER [Suspect]
     Indication: PULMONARY ARTERIAL HYPERTENSION
     Dosage: 62.5 MG, BID
     Route: 048
     Dates: start: 20021229, end: 20030129
  2. TRACLEER [Suspect]
     Dosage: 125 MG, BID
     Dates: start: 20030130
  3. TRACLEER [Suspect]
     Dosage: 62.5 MG, BID
  4. TORSEMIDE [Concomitant]
     Dosage: 80 UNK, BID
  5. PREVACID [Concomitant]
  6. GLUCOTROL [Concomitant]
  7. COZAAR [Concomitant]
  8. POTASSIUM CHLORIDE [Concomitant]
  9. MAGNESIUM OXIDE [Concomitant]
  10. BEXTRA [Concomitant]
  11. LIPITOR [Concomitant]
  12. TOPROL-XL [Concomitant]

REACTIONS (2)
  - DEATH [None]
  - OEDEMA PERIPHERAL [None]
